FAERS Safety Report 12495336 (Version 1)
Quarter: 2016Q2

REPORT INFORMATION
  Report Type: Spontaneous
  Country: US (occurrence: US)
  Receive Date: 20160624
  Receipt Date: 20160624
  Transmission Date: 20160815
  Serious: Yes (Hospitalization)
  Sender: FDA-Public Use
  Company Number: US-PERRIGO-16US017115

PATIENT
  Age: 63 Year
  Sex: Male

DRUGS (2)
  1. DOXYLAMINE SUCCINATE. [Suspect]
     Active Substance: DOXYLAMINE SUCCINATE
     Dosage: 1 TABLET, SINGLE
     Route: 048
  2. DOXYLAMINE SUCCINATE. [Suspect]
     Active Substance: DOXYLAMINE SUCCINATE
     Indication: INSOMNIA
     Dosage: UNKNOWN, SINGLE
     Route: 048

REACTIONS (9)
  - Humerus fracture [Unknown]
  - Rhabdomyolysis [Unknown]
  - Leukocytosis [Unknown]
  - Blood lactic acid increased [Unknown]
  - Muscle spasms [Unknown]
  - Musculoskeletal pain [Unknown]
  - Seizure [Recovered/Resolved]
  - Encephalopathy [Recovered/Resolved]
  - Joint dislocation [Unknown]
